FAERS Safety Report 9583999 (Version 2)
Quarter: 2013Q4

REPORT INFORMATION
  Report Type: Report from Study
  Country: CA (occurrence: CA)
  Receive Date: 20131002
  Receipt Date: 20131003
  Transmission Date: 20140711
  Serious: Yes (Life-Threatening, Hospitalization, Other)
  Sender: FDA-Public Use
  Company Number: CA-ABBVIE-13P-028-1153691-00

PATIENT
  Age: 48 Year
  Sex: Female

DRUGS (2)
  1. HUMIRA [Suspect]
     Indication: CROHN^S DISEASE
     Route: 058
     Dates: start: 20130506
  2. STEROID (NOS) [Suspect]
     Indication: PRODUCT USED FOR UNKNOWN INDICATION

REACTIONS (6)
  - Coma [Not Recovered/Not Resolved]
  - Sepsis [Recovering/Resolving]
  - Crohn^s disease [Recovering/Resolving]
  - Anastomotic leak [Recovering/Resolving]
  - Renal failure [Recovering/Resolving]
  - Blood albumin decreased [Unknown]
